FAERS Safety Report 8232494-8 (Version None)
Quarter: 2012Q1

REPORT INFORMATION
  Report Type: 
  Country: None (occurrence: None)
  Receive Date: 20120323
  Receipt Date: 20120315
  Transmission Date: 20120608
  Serious: Yes (Hospitalization, Other)
  Sender: FDA-Public Use
  Company Number: CA-PURDUE-CAN-2011-0002473

PATIENT
  Sex: Male

DRUGS (10)
  1. LEVOTHYROXINE SODIUM [Suspect]
     Indication: PRODUCT USED FOR UNKNOWN INDICATION
     Dosage: 0.1 MG, DAILY
     Route: 064
  2. OXYCONTIN [Suspect]
     Dosage: 50 MG, TID
     Route: 064
  3. OXYCONTIN [Suspect]
     Dosage: 20 MG, TID
     Route: 064
  4. GRAVOL TAB [Suspect]
     Indication: PRODUCT USED FOR UNKNOWN INDICATION
     Dosage: 50 MG, TID
     Route: 064
  5. PROZAC [Suspect]
     Indication: PRODUCT USED FOR UNKNOWN INDICATION
     Dosage: 40 MG, DAILY
     Route: 064
  6. OXYCONTIN [Suspect]
     Indication: PRODUCT USED FOR UNKNOWN INDICATION
     Dosage: 50 MG, TID
     Route: 064
  7. CLONAZEPAM [Suspect]
     Indication: PRODUCT USED FOR UNKNOWN INDICATION
     Dosage: 0.5 MG, TID
     Route: 064
  8. OXYCONTIN [Suspect]
     Dosage: 20 MG, TID
     Route: 064
  9. OXYCODONE HCL [Suspect]
     Indication: PRODUCT USED FOR UNKNOWN INDICATION
     Dosage: 2 TABLET, DAILY
     Route: 064
  10. IMITREX [Suspect]
     Indication: PRODUCT USED FOR UNKNOWN INDICATION
     Route: 064

REACTIONS (6)
  - CARDIAC DISORDER [None]
  - AORTIC VALVE INCOMPETENCE [None]
  - HYPOPLASTIC LEFT HEART SYNDROME [None]
  - RESPIRATORY DEPRESSION [None]
  - VENTRICULAR SEPTAL DEFECT [None]
  - FOETAL EXPOSURE DURING PREGNANCY [None]
